FAERS Safety Report 25009940 (Version 1)
Quarter: 2025Q1

REPORT INFORMATION
  Report Type: Spontaneous
  Country: JP (occurrence: JP)
  Receive Date: 20250225
  Receipt Date: 20250225
  Transmission Date: 20250409
  Serious: Yes (Death, Other)
  Sender: ALEXION PHARMACEUTICALS
  Company Number: JP-ASTRAZENECA-240132872_064320_P_1

PATIENT
  Age: 88 Year

DRUGS (7)
  1. ANDEXXA [Suspect]
     Active Substance: ANDEXANET ALFA
  2. ANDEXXA [Suspect]
     Active Substance: ANDEXANET ALFA
  3. ANDEXXA [Suspect]
     Active Substance: ANDEXANET ALFA
  4. ANDEXXA [Suspect]
     Active Substance: ANDEXANET ALFA
  5. ANDEXXA [Suspect]
     Active Substance: ANDEXANET ALFA
  6. Apixaban 5 zydus [Concomitant]
  7. Apixaban 5 zydus [Concomitant]

REACTIONS (1)
  - Brain injury [Fatal]
